FAERS Safety Report 8848083 (Version 3)
Quarter: 2013Q1

REPORT INFORMATION
  Report Type: Spontaneous
  Country: US (occurrence: US)
  Receive Date: 20121018
  Receipt Date: 20130218
  Transmission Date: 20140127
  Serious: Yes (Death)
  Sender: FDA-Public Use
  Company Number: US-ROCHE-1133373

PATIENT
  Sex: Male

DRUGS (1)
  1. XELODA [Suspect]
     Indication: CARCINOID TUMOUR OF THE SMALL BOWEL
     Route: 065

REACTIONS (1)
  - Death [Fatal]
